FAERS Safety Report 7222358-0 (Version None)
Quarter: 2011Q1

REPORT INFORMATION
  Report Type: 
  Country: None (occurrence: None)
  Receive Date: 20110112
  Receipt Date: 20110110
  Transmission Date: 20110831
  Serious: Yes (Hospitalization)
  Sender: FDA-Public Use
  Company Number: NL-ABBOTT-10P-114-0663778-00

PATIENT
  Weight: 63 kg

DRUGS (4)
  1. LIVIAL [Concomitant]
     Indication: HOT FLUSH
     Route: 048
     Dates: start: 20100726
  2. LUCRIN [Suspect]
     Indication: LEIOMYOMA
     Route: 058
     Dates: start: 20100712, end: 20100901
  3. LIVIAL [Concomitant]
     Indication: PROPHYLAXIS
  4. LUCRIN [Suspect]
     Indication: UTERINE ENLARGEMENT

REACTIONS (6)
  - EYE IRRITATION [None]
  - ARTHROPATHY [None]
  - HAIR DISORDER [None]
  - HYSTERECTOMY [None]
  - FATIGUE [None]
  - DEPRESSION [None]
